FAERS Safety Report 5752711-3 (Version None)
Quarter: 2008Q2

REPORT INFORMATION
  Report Type: 
  Country: None (occurrence: None)
  Receive Date: 20080529
  Receipt Date: 20080519
  Transmission Date: 20081010
  Serious: Yes (Hospitalization)
  Sender: FDA-Public Use
  Company Number: FR-PFIZER INC-2008043844

PATIENT
  Sex: Female

DRUGS (8)
  1. ALDACTONE [Suspect]
     Indication: HYPERTENSION
     Route: 048
  2. POTASSIUM CHLORIDE [Interacting]
     Route: 048
  3. CORDARONE [Concomitant]
     Indication: ATRIAL FIBRILLATION
     Route: 048
  4. NEXIUM [Concomitant]
     Route: 048
  5. ASPIRIN [Concomitant]
     Route: 048
  6. BACTRIM DS [Concomitant]
     Indication: URINARY TRACT INFECTION
     Route: 048
     Dates: start: 20080307, end: 20080314
  7. ZOLPIDEM TARTRATE [Concomitant]
     Route: 048
  8. SELOKEN [Concomitant]
     Route: 048

REACTIONS (5)
  - DEHYDRATION [None]
  - DRUG INTERACTION [None]
  - HYPERKALAEMIA [None]
  - HYPONATRAEMIA [None]
  - RENAL FAILURE [None]
